FAERS Safety Report 5007942-7 (Version None)
Quarter: 2006Q2

REPORT INFORMATION
  Report Type: 
  Country: None (occurrence: None)
  Receive Date: 20060518
  Receipt Date: 20060508
  Transmission Date: 20061013
  Serious: Yes (Hospitalization)
  Sender: FDA-Public Use
  Company Number: GXKR2006GB02565

PATIENT
  Age: 65 Year
  Sex: Female

DRUGS (5)
  1. LANSOPRAZOLE (NGX) (LANSOPRAZOLE) [Suspect]
     Indication: HELICOBACTER INFECTION
  2. CLARITHROMYCIN [Suspect]
     Indication: HELICOBACTER INFECTION
  3. METRONIDAZOLE [Suspect]
     Indication: HELICOBACTER INFECTION
  4. AZATHIOPRINE [Concomitant]
  5. CO-PROXAMOL (DEXTROPROPOXYPHENE HYDROCHLORIDE, PARACETAMOL) [Concomitant]

REACTIONS (16)
  - ACTIVATED PARTIAL THROMBOPLASTIN TIME [None]
  - ALANINE AMINOTRANSFERASE INCREASED [None]
  - ANOREXIA [None]
  - ASPARTATE AMINOTRANSFERASE INCREASED [None]
  - BLOOD ALBUMIN DECREASED [None]
  - BLOOD BILIRUBIN INCREASED [None]
  - BONE MARROW FAILURE [None]
  - CANDIDIASIS [None]
  - DRY MOUTH [None]
  - HEPATOSPLENOMEGALY [None]
  - INTERNATIONAL NORMALISED RATIO INCREASED [None]
  - PANCYTOPENIA [None]
  - PHARYNGITIS [None]
  - PURPURA [None]
  - URINARY TRACT INFECTION [None]
  - WEIGHT DECREASED [None]
